FAERS Safety Report 22869652 (Version 6)
Quarter: 2023Q4

REPORT INFORMATION
  Report Type: Spontaneous
  Country: DE (occurrence: DE)
  Receive Date: 20230826
  Receipt Date: 20231201
  Transmission Date: 20240109
  Serious: Yes (Hospitalization, Other)
  Sender: FDA-Public Use
  Company Number: DE-KRKA-DE2023K07524STU

PATIENT
  Age: 76 Year
  Sex: Male
  Weight: 73 kg

DRUGS (30)
  1. LENALIDOMIDE [Suspect]
     Active Substance: LENALIDOMIDE
     Indication: Plasma cell myeloma
     Dosage: 1040 MILLIGRAM
     Route: 065
  2. LENALIDOMIDE [Suspect]
     Active Substance: LENALIDOMIDE
     Dosage: 20 MILLIGRAM, ONCE A DAY (20 MG, PER DAY ON CYCLE DAYS 1-21)
     Route: 048
     Dates: start: 20230330, end: 20230522
  3. LENALIDOMIDE [Suspect]
     Active Substance: LENALIDOMIDE
     Dosage: 15 MILLIGRAM, ONCE A DAY (15 MG PER DAY ON CYCLE DAYS 1-21)
     Route: 048
     Dates: start: 202305, end: 20230509
  4. LENALIDOMIDE [Suspect]
     Active Substance: LENALIDOMIDE
     Dosage: 15 MILLIGRAM, ONCE A DAY (15 MG PER DAY ON CYCLE DAYS 1-21)
     Route: 048
     Dates: start: 20230717
  5. DEXAMETHASONE [Suspect]
     Active Substance: DEXAMETHASONE
     Indication: Plasma cell myeloma
     Dosage: 20 MILLIGRAM, ONCE A DAY (20 MG, PER DAY ON CYCLE DAYS 1, 2, 8, 9, 15, 16, 22, 23)
     Route: 048
     Dates: start: 20230330, end: 20230726
  6. DEXAMETHASONE [Suspect]
     Active Substance: DEXAMETHASONE
     Dosage: 20 MILLIGRAM, ONCE A DAY
     Route: 048
     Dates: end: 20231018
  7. DEXAMETHASONE [Suspect]
     Active Substance: DEXAMETHASONE
     Dosage: 20 MILLIGRAM, ONCE A DAY
     Route: 048
     Dates: start: 20231025
  8. DARATUMUMAB [Suspect]
     Active Substance: DARATUMUMAB
     Indication: Plasma cell myeloma
     Dosage: 1800 MILLIGRAM, DAY 1, 8, 15, 22
     Route: 058
     Dates: start: 20230330
  9. DARATUMUMAB [Suspect]
     Active Substance: DARATUMUMAB
     Dosage: 1822 MILLIGRAM, ONCE A DAY
     Route: 058
     Dates: start: 20230523
  10. DARATUMUMAB [Suspect]
     Active Substance: DARATUMUMAB
     Dosage: 1800 MILLIGRAM, ONCE A DAY
     Route: 065
     Dates: start: 20231025
  11. TORSEMIDE [Suspect]
     Active Substance: TORSEMIDE
     Indication: Product used for unknown indication
     Dosage: UNK
     Route: 065
  12. ACYCLOVIR [Concomitant]
     Active Substance: ACYCLOVIR
     Indication: Product used for unknown indication
     Dosage: UNK
     Route: 065
  13. CANDESARTAN [Concomitant]
     Active Substance: CANDESARTAN
     Indication: Product used for unknown indication
     Dosage: 16 MILLIGRAM, 1X PER DAY 1-0-0
     Route: 048
     Dates: start: 20230622
  14. COTRIM [Concomitant]
     Active Substance: SULFAMETHOXAZOLE\TRIMETHOPRIM
     Indication: Product used for unknown indication
     Dosage: UNK
     Route: 065
  15. ELIQUIS [Concomitant]
     Active Substance: APIXABAN
     Indication: Product used for unknown indication
     Dosage: UNK
     Route: 065
  16. LERCANIDIPINE [Concomitant]
     Active Substance: LERCANIDIPINE
     Indication: Product used for unknown indication
     Dosage: UNK
     Route: 065
  17. DIMETHINDENE [Concomitant]
     Active Substance: DIMETHINDENE
     Indication: Product used for unknown indication
     Dosage: UNK
     Route: 065
  18. CALCIUM CARBONATE\CHOLECALCIFEROL [Concomitant]
     Active Substance: CALCIUM CARBONATE\CHOLECALCIFEROL
     Indication: Product used for unknown indication
     Dosage: 25 MILLIGRAM, 1X PER DAY 1-0-0
     Route: 048
     Dates: start: 20230623
  19. DIGOXIN [Concomitant]
     Active Substance: DIGOXIN
     Indication: Product used for unknown indication
     Dosage: 0.25 MILLIGRAM, 1X PER DAY
     Route: 048
     Dates: start: 20230622
  20. MONTELUKAST [Concomitant]
     Active Substance: MONTELUKAST SODIUM
     Indication: Product used for unknown indication
     Dosage: UNK
     Route: 065
  21. METOPROLOL [Concomitant]
     Active Substance: METOPROLOL
     Indication: Product used for unknown indication
     Dosage: 50 MILLIGRAM, 50 MG, 2X PER DAY 1.5-0-1.5
     Route: 048
     Dates: start: 20230622
  22. ACETAMINOPHEN [Concomitant]
     Active Substance: ACETAMINOPHEN
     Indication: Product used for unknown indication
     Dosage: 40 MILLIGRAM ( G, 1X PER DAY 1-0-0)
     Route: 048
     Dates: start: 20230622
  23. Pantoprazole hexal [Concomitant]
     Indication: Product used for unknown indication
     Dosage: 40 MILLIGRAM, ONCE A DAY
     Route: 048
     Dates: start: 20230622
  24. MOVICOL [Concomitant]
     Active Substance: POLYETHYLENE GLYCOL 3350\POTASSIUM CHLORIDE\SODIUM BICARBONATE\SODIUM CHLORIDE
     Indication: Product used for unknown indication
     Dosage: 1 DOSAGE FORM
     Route: 048
     Dates: start: 20230623
  25. FRESUBIN [Concomitant]
     Active Substance: AMINO ACIDS\DEXTROSE\ELECTROLYTES NOS\SOYBEAN OIL\VITAMINS
     Indication: Product used for unknown indication
     Dosage: 1 DOSAGE FORM, 1 DOSAGE FORM, 2X PER DAY 1-1-0
     Route: 048
     Dates: start: 20230622
  26. TORSEMIDE [Concomitant]
     Active Substance: TORSEMIDE
     Indication: Product used for unknown indication
     Dosage: 10 MILLIGRAM, 2X PER DAY 1-1-0
     Route: 048
     Dates: start: 20230627
  27. ENOXAPARIN SODIUM [Concomitant]
     Active Substance: ENOXAPARIN SODIUM
     Indication: Product used for unknown indication
     Dosage: 1 DOSAGE FORM, 2X PER DAY 1-0-1
     Route: 058
     Dates: start: 20230623
  28. ACYCLOVIR [Concomitant]
     Active Substance: ACYCLOVIR
     Indication: Product used for unknown indication
     Dosage: 400 MILLIGRAM (400 MG, 2X PER DAY 1-0-1)
     Route: 048
     Dates: start: 20230622
  29. ALDACTONE [Concomitant]
     Active Substance: SPIRONOLACTONE
     Indication: Product used for unknown indication
     Dosage: 25 MILLIGRAM, ONCE A DAY (25 MG, 1X PER DAY 1-0-0)
     Route: 048
     Dates: start: 20230623
  30. Calcium Sandoz D3 f [Concomitant]
     Indication: Product used for unknown indication
     Dosage: UNK
     Route: 048
     Dates: start: 20230622

REACTIONS (13)
  - Calculus bladder [Recovered/Resolved]
  - Cardiac failure acute [Recovered/Resolved]
  - Fatigue [Recovered/Resolved]
  - Renal oncocytoma [Recovered/Resolved]
  - Malaise [Recovered/Resolved]
  - Neutropenia [Recovering/Resolving]
  - White blood cell count decreased [Recovering/Resolving]
  - Febrile neutropenia [Unknown]
  - Haemoglobin decreased [Recovered/Resolved]
  - Leukopenia [Unknown]
  - Rash [Recovering/Resolving]
  - Dyspnoea [Recovered/Resolved]
  - Vertigo [Recovering/Resolving]

NARRATIVE: CASE EVENT DATE: 20230501
